FAERS Safety Report 5494063-2 (Version None)
Quarter: 2007Q4

REPORT INFORMATION
  Report Type: 
  Country: None (occurrence: None)
  Receive Date: 20071022
  Receipt Date: 20071008
  Transmission Date: 20080405
  Serious: Yes (Death, Other)
  Sender: FDA-Public Use
  Company Number: 2007333194

PATIENT
  Age: 4 Month
  Sex: Male
  Weight: 6.8 kg

DRUGS (4)
  1. PSEUDOEPHEDRINE HCL [Suspect]
  2. ACETAMINOPHEN [Suspect]
  3. DRUG, UNSPECIFIED (DRUG, UNSPECIFIED) [Suspect]
  4. PHENYLPROPANOLAMINE HCL [Suspect]

REACTIONS (5)
  - ALPHA HAEMOLYTIC STREPTOCOCCAL INFECTION [None]
  - BLOOD CULTURE POSITIVE [None]
  - DRUG LEVEL INCREASED [None]
  - STAPHYLOCOCCAL INFECTION [None]
  - SUDDEN INFANT DEATH SYNDROME [None]
